FAERS Safety Report 19498115 (Version 2)
Quarter: 2021Q3

REPORT INFORMATION
  Report Type: Spontaneous
  Country: AU (occurrence: AU)
  Receive Date: 20210706
  Receipt Date: 20210730
  Transmission Date: 20211014
  Serious: Yes (Other)
  Sender: FDA-Public Use
  Company Number: AU-PFIZER INC-2021799845

PATIENT
  Age: 28 Year
  Sex: Female

DRUGS (6)
  1. CLOPINE [Suspect]
     Active Substance: CLOZAPINE
     Indication: SCHIZOPHRENIA
     Dosage: UNK
     Dates: start: 20180619
  2. AMISULPRIDE [Suspect]
     Active Substance: AMISULPRIDE
     Dosage: 400 MG, DAILY
     Route: 048
  3. CLOPINE [Suspect]
     Active Substance: CLOZAPINE
     Dosage: 225 MG, DAILY
     Route: 048
  4. CLOPINE [Suspect]
     Active Substance: CLOZAPINE
     Dosage: 500 MG
  5. SERTRALINE HCL [Suspect]
     Active Substance: SERTRALINE HYDROCHLORIDE
     Dosage: 50 MG, DAILY
     Route: 048
  6. AMISULPRIDE [Suspect]
     Active Substance: AMISULPRIDE
     Dosage: 500 MG, DAILY (100MG MORNING , 400MG NOCTE )

REACTIONS (29)
  - Tricuspid valve incompetence [Unknown]
  - Mitral valve incompetence [Unknown]
  - Electrocardiogram T wave abnormal [Unknown]
  - Left ventricular hypertrophy [Unknown]
  - Drug level decreased [Unknown]
  - Drug level increased [Unknown]
  - Sinus tachycardia [Unknown]
  - Haematocrit decreased [Unknown]
  - Transferrin decreased [Unknown]
  - Electrocardiogram repolarisation abnormality [Unknown]
  - Blood urea decreased [Unknown]
  - Ejection fraction decreased [Unknown]
  - Blood alkaline phosphatase increased [Unknown]
  - Haemoglobin decreased [Unknown]
  - Red blood cell count decreased [Unknown]
  - C-reactive protein increased [Unknown]
  - Blood iron decreased [Unknown]
  - Cardiac disorder [Unknown]
  - Cardiomyopathy [Unknown]
  - Left ventricular dysfunction [Unknown]
  - Electrocardiogram QT prolonged [Unknown]
  - Electrocardiogram abnormal [Unknown]
  - Mean cell haemoglobin decreased [Unknown]
  - Red cell distribution width increased [Unknown]
  - Low density lipoprotein increased [Unknown]
  - Electrocardiogram low voltage [Unknown]
  - Blood chloride increased [Unknown]
  - Vitamin D decreased [Unknown]
  - High density lipoprotein decreased [Unknown]

NARRATIVE: CASE EVENT DATE: 20181004
